FAERS Safety Report 21915868 (Version 1)
Quarter: 2023Q1

REPORT INFORMATION
  Report Type: Spontaneous
  Country: US (occurrence: None)
  Receive Date: 20230125
  Receipt Date: 20230125
  Transmission Date: 20230417
  Serious: No
  Sender: FDA-Public Use
  Company Number: None

PATIENT
  Age: 54 Year
  Sex: Female
  Weight: 82.8 kg

DRUGS (1)
  1. BUPROPION HYDROCHLORIDE EXTENDED RELEASE [Suspect]
     Active Substance: BUPROPION HYDROCHLORIDE
     Indication: Depression
     Dosage: OTHER QUANTITY : 1 TABLET(S);?FREQUENCY : DAILY;?
     Route: 048
     Dates: start: 20230112

REACTIONS (7)
  - Hidradenitis [None]
  - Product substitution issue [None]
  - Drug ineffective [None]
  - Anxiety [None]
  - Insomnia [None]
  - Depression [None]
  - Crying [None]

NARRATIVE: CASE EVENT DATE: 20230112
